FAERS Safety Report 12054249 (Version 1)
Quarter: 2016Q1

REPORT INFORMATION
  Report Type: Spontaneous
  Country: US (occurrence: US)
  Receive Date: 20160209
  Receipt Date: 20160209
  Transmission Date: 20160526
  Serious: No
  Sender: FDA-Public Use
  Company Number: US-PFIZER INC-2016067730

PATIENT
  Age: 79 Year
  Sex: Female
  Weight: 58.97 kg

DRUGS (2)
  1. NEURONTIN [Suspect]
     Active Substance: GABAPENTIN
     Indication: BACK PAIN
  2. NEURONTIN [Suspect]
     Active Substance: GABAPENTIN
     Indication: NEURALGIA
     Dosage: 300 MG, 3X/DAY
     Route: 048

REACTIONS (4)
  - Intervertebral disc protrusion [Unknown]
  - Product use issue [Unknown]
  - Exostosis [Unknown]
  - Radiculopathy [Unknown]

NARRATIVE: CASE EVENT DATE: 20150216
